FAERS Safety Report 4839897-X (Version None)
Quarter: 2005Q4

REPORT INFORMATION
  Report Type: 
  Country: None (occurrence: None)
  Receive Date: 20051129
  Receipt Date: 20051121
  Transmission Date: 20060501
  Serious: Yes (Hospitalization)
  Sender: FDA-Public Use
  Company Number: IT-ROCHE-425529

PATIENT
  Age: 47 Year
  Sex: Male

DRUGS (3)
  1. PEGASYS [Suspect]
     Indication: HEPATITIS C
     Route: 058
     Dates: start: 20050412, end: 20050506
  2. RIBAVIRIN [Concomitant]
     Dates: start: 20050412, end: 20050506
  3. NIMESULIDE [Concomitant]
     Route: 048

REACTIONS (1)
  - POLYNEUROPATHY [None]
